FAERS Safety Report 7042863-X (Version None)
Quarter: 2010Q4

REPORT INFORMATION
  Report Type: 
  Country: None (occurrence: None)
  Receive Date: 20101013
  Receipt Date: 20100715
  Transmission Date: 20110411
  Serious: No
  Sender: FDA-Public Use
  Company Number: US-ASTRAZENECA-2010SE29867

PATIENT
  Sex: Female
  Weight: 51.3 kg

DRUGS (4)
  1. SYMBICORT [Suspect]
     Dosage: 160 MCG 2 PUFFS BID
     Route: 055
     Dates: start: 20100101, end: 20100621
  2. NABUMETONE [Concomitant]
  3. DILTIAZEM [Concomitant]
  4. SULFASALAZINE [Concomitant]

REACTIONS (3)
  - DRUG DOSE OMISSION [None]
  - DYSPNOEA [None]
  - TREATMENT NONCOMPLIANCE [None]
